FAERS Safety Report 16198871 (Version 1)
Quarter: 2019Q2

REPORT INFORMATION
  Report Type: Spontaneous
  Country: IT (occurrence: IT)
  Receive Date: 20190415
  Receipt Date: 20190415
  Transmission Date: 20190711
  Serious: Yes (Other)
  Sender: FDA-Public Use
  Company Number: PHHY2019IT086735

PATIENT
  Age: 71 Year
  Sex: Male
  Weight: 70 kg

DRUGS (4)
  1. TELMISARTAN. [Suspect]
     Active Substance: TELMISARTAN
     Indication: INTENTIONAL SELF-INJURY
     Dosage: 20 DF, TOTAL
     Route: 048
     Dates: start: 20190402, end: 20190402
  2. INVEGA [Suspect]
     Active Substance: PALIPERIDONE
     Indication: INTENTIONAL SELF-INJURY
     Dosage: DOSAGE FORM: OROS (ORAL OSMOTIC) THERAPEUTIC SYSTEM TABLET
     Route: 048
     Dates: start: 20190402, end: 20190402
  3. NIFEDICOR [Suspect]
     Active Substance: NIFEDIPINE
     Indication: INTENTIONAL SELF-INJURY
     Dosage: 30 ML, TOTAL
     Route: 048
     Dates: start: 20190402, end: 20190402
  4. CARDICOR [Suspect]
     Active Substance: BISOPROLOL
     Indication: INTENTIONAL SELF-INJURY
     Dosage: 30 DF, TOTAL
     Route: 048
     Dates: start: 20190402, end: 20190402

REACTIONS (2)
  - Intentional product misuse [Unknown]
  - Hypotension [Unknown]

NARRATIVE: CASE EVENT DATE: 20190402
